FAERS Safety Report 17614608 (Version 2)
Quarter: 2020Q2

REPORT INFORMATION
  Report Type: Spontaneous
  Country: BR (occurrence: BR)
  Receive Date: 20200402
  Receipt Date: 20200406
  Transmission Date: 20200713
  Serious: Yes (Other)
  Sender: FDA-Public Use
  Company Number: BR-GLAXOSMITHKLINE-BR2020AMR056233

PATIENT
  Sex: Female
  Weight: 62 kg

DRUGS (2)
  1. FLIXOTIDE [Suspect]
     Active Substance: FLUTICASONE PROPIONATE
     Indication: RESPIRATORY DISORDER
     Dosage: UNK (250 MG)
  2. FLUIR [Suspect]
     Active Substance: FORMOTEROL FUMARATE
     Indication: PRODUCT USED FOR UNKNOWN INDICATION
     Dosage: UNK

REACTIONS (6)
  - Asthmatic crisis [Recovered/Resolved]
  - Speech disorder [Recovered/Resolved]
  - Gait inability [Recovered/Resolved]
  - Inappropriate schedule of product administration [Unknown]
  - Sleep disorder due to a general medical condition [Unknown]
  - Dyspnoea [Recovered/Resolved]
